FAERS Safety Report 7772028-5 (Version None)
Quarter: 2011Q3

REPORT INFORMATION
  Report Type: 
  Country: None (occurrence: None)
  Receive Date: 20110922
  Receipt Date: 20110401
  Transmission Date: 20111222
  Serious: No
  Sender: FDA-Public Use
  Company Number: US-ASTRAZENECA-2009UW10239

PATIENT
  Age: 22524 Day
  Sex: Male
  Weight: 85.3 kg

DRUGS (4)
  1. SEROQUEL [Suspect]
     Route: 048
  2. LITHIUM [Concomitant]
  3. SEROQUEL [Suspect]
     Indication: BIPOLAR DISORDER
     Route: 048
     Dates: start: 20010101
  4. SEROQUEL [Suspect]
     Route: 048

REACTIONS (7)
  - DRUG INEFFECTIVE [None]
  - DRUG DOSE OMISSION [None]
  - PAIN [None]
  - DIABETES MELLITUS [None]
  - MENTAL DISORDER [None]
  - ABDOMINAL DISCOMFORT [None]
  - INSOMNIA [None]
